FAERS Safety Report 11344165 (Version 2)
Quarter: 2015Q3

REPORT INFORMATION
  Report Type: Spontaneous
  Country: GB (occurrence: GB)
  Receive Date: 20150806
  Receipt Date: 20150929
  Transmission Date: 20151125
  Serious: Yes (Other)
  Sender: FDA-Public Use
  Company Number: GB-BEH-2015052630

PATIENT
  Age: 48 Year
  Sex: Female
  Weight: 82 kg

DRUGS (10)
  1. MIFEDIPINE [Concomitant]
  2. PARACETAMOL [Concomitant]
     Active Substance: ACETAMINOPHEN
  3. THYROXINE [Concomitant]
     Active Substance: LEVOTHYROXINE
  4. HIZENTRA [Suspect]
     Active Substance: HUMAN IMMUNOGLOBULIN G
     Dosage: INFUSION VIA GRASEBY PUMP AT 99MM/HR
     Route: 058
     Dates: start: 20150715
  5. CANDESARTAN [Concomitant]
     Active Substance: CANDESARTAN
  6. CETIRIZINE [Concomitant]
     Active Substance: CETIRIZINE HYDROCHLORIDE
  7. HIZENTRA [Suspect]
     Active Substance: HUMAN IMMUNOGLOBULIN G
     Indication: SELECTIVE IGG SUBCLASS DEFICIENCY
     Dosage: INFUSION VIA GRASEBY PUMP AT 99MM/HR
     Route: 058
     Dates: start: 20150701
  8. CODEINE [Concomitant]
     Active Substance: CODEINE
  9. AZITHRAMYCIN [Concomitant]
  10. AMITRIPTYLINE [Concomitant]
     Active Substance: AMITRIPTYLINE

REACTIONS (15)
  - Infusion site infection [Recovered/Resolved]
  - Malaise [Recovered/Resolved]
  - Infusion site warmth [Recovered/Resolved]
  - Infusion site induration [Recovered/Resolved]
  - Infusion site rash [Recovered/Resolved]
  - Infusion site erythema [Recovered/Resolved]
  - Infusion site nodule [Recovered/Resolved]
  - Infusion site rash [Recovered/Resolved]
  - Lethargy [Recovered/Resolved]
  - Infusion site induration [Recovered/Resolved]
  - Lethargy [Recovered/Resolved]
  - Infusion site nodule [Recovered/Resolved]
  - Infusion site warmth [Recovered/Resolved]
  - Infusion site erythema [Recovered/Resolved]
  - Malaise [Recovered/Resolved]

NARRATIVE: CASE EVENT DATE: 20150705
